FAERS Safety Report 19443861 (Version 18)
Quarter: 2025Q1

REPORT INFORMATION
  Report Type: Report from Study
  Country: US (occurrence: US)
  Receive Date: 20210621
  Receipt Date: 20250327
  Transmission Date: 20250409
  Serious: Yes (Hospitalization, Other)
  Sender: TAKEDA
  Company Number: US-TAKEDA-US201900107

PATIENT
  Age: 66 Year
  Sex: Female

DRUGS (3)
  1. HUMAN IMMUNOGLOBULIN G [Suspect]
     Active Substance: HUMAN IMMUNOGLOBULIN G
     Indication: Hypogammaglobulinaemia
     Dosage: 30 GRAM, Q4WEEKS
  2. HUMAN IMMUNOGLOBULIN G [Suspect]
     Active Substance: HUMAN IMMUNOGLOBULIN G
     Indication: Primary immunodeficiency syndrome
  3. CUVITRU [Suspect]
     Active Substance: HUMAN IMMUNOGLOBULIN G
     Indication: Hypogammaglobulinaemia

REACTIONS (30)
  - Pneumonia [Unknown]
  - Fall [Unknown]
  - Gait disturbance [Unknown]
  - Narcolepsy [Unknown]
  - Rib fracture [Unknown]
  - Oral candidiasis [Unknown]
  - Pain in extremity [Not Recovered/Not Resolved]
  - Cardiac failure congestive [Unknown]
  - Hypersomnia [Unknown]
  - COVID-19 [Not Recovered/Not Resolved]
  - Drug interaction [Unknown]
  - Anal incontinence [Unknown]
  - Oral mucosal blistering [Unknown]
  - Large intestine polyp [Unknown]
  - Irritable bowel syndrome [Unknown]
  - Post-acute COVID-19 syndrome [Unknown]
  - Bronchitis chronic [Unknown]
  - Fibromyalgia [Unknown]
  - Aortic aneurysm [Unknown]
  - Insurance issue [Unknown]
  - Blood test abnormal [Unknown]
  - Impaired healing [Unknown]
  - Dysphonia [Unknown]
  - Product use issue [Unknown]
  - Malaise [Unknown]
  - Diarrhoea [Unknown]
  - Headache [Unknown]
  - Fatigue [Unknown]
  - Arthralgia [Unknown]
  - Illness [Unknown]

NARRATIVE: CASE EVENT DATE: 20240301
